FAERS Safety Report 5129097-0 (Version None)
Quarter: 2006Q4

REPORT INFORMATION
  Report Type: 
  Country: None (occurrence: None)
  Receive Date: 20061016
  Receipt Date: 20061016
  Transmission Date: 20070319
  Serious: No
  Sender: FDA-Public Use
  Company Number: None

PATIENT
  Age: 16 Year
  Sex: Female
  Weight: 72.5755 kg

DRUGS (1)
  1. ZOFRAN [Suspect]
     Indication: NAUSEA
     Dosage: 4MG ONCE IV BOLUS
     Route: 040
     Dates: start: 20061011, end: 20061011

REACTIONS (7)
  - DIZZINESS [None]
  - FEELING ABNORMAL [None]
  - HEADACHE [None]
  - MONONUCLEOSIS HETEROPHILE TEST POSITIVE [None]
  - TACHYCARDIA [None]
  - THROAT TIGHTNESS [None]
  - TREMOR [None]
